FAERS Safety Report 18755673 (Version 1)
Quarter: 2021Q1

REPORT INFORMATION
  Report Type: Report from Study
  Country: US (occurrence: US)
  Receive Date: 20210119
  Receipt Date: 20210119
  Transmission Date: 20210419
  Serious: No
  Sender: FDA-Public Use
  Company Number: US-KYOWAKIRIN-2021BKK000428

PATIENT

DRUGS (1)
  1. CRYSVITA [Suspect]
     Active Substance: BUROSUMAB-TWZA
     Indication: HEREDITARY HYPOPHOSPHATAEMIC RICKETS
     Dosage: 60 MG, 1X/MONTH
     Route: 065
     Dates: end: 2020

REACTIONS (5)
  - Nasal congestion [Unknown]
  - Suspected COVID-19 [Unknown]
  - Ageusia [Unknown]
  - Anosmia [Unknown]
  - Nasopharyngitis [Unknown]
